FAERS Safety Report 18071453 (Version 1)
Quarter: 2020Q3

REPORT INFORMATION
  Report Type: Spontaneous
  Country: US (occurrence: US)
  Receive Date: 20200724
  Receipt Date: 20200724
  Transmission Date: 20201103
  Serious: Yes (Hospitalization, Other)
  Sender: FDA-Public Use
  Company Number: None

PATIENT
  Age: 63 Year
  Sex: Male

DRUGS (8)
  1. LINEZOLID. [Concomitant]
     Active Substance: LINEZOLID
  2. METRONIDAZOL [Concomitant]
     Active Substance: METRONIDAZOLE
  3. PROLIA [Suspect]
     Active Substance: DENOSUMAB
     Indication: OSTEOPOROSIS
     Dosage: ?          OTHER FREQUENCY:EVERY 6 MONTHS;?
     Route: 058
     Dates: start: 20180531
  4. BENLYSTA [Suspect]
     Active Substance: BELIMUMAB
     Indication: SYSTEMIC LUPUS ERYTHEMATOSUS
     Dosage: ?          OTHER FREQUENCY:EVERY WEEK;?
     Route: 058
     Dates: start: 20180508
  5. MORPHINE [Concomitant]
     Active Substance: MORPHINE
  6. LEVOFLOXACIN. [Concomitant]
     Active Substance: LEVOFLOXACIN
  7. ONDANSETRON [Concomitant]
     Active Substance: ONDANSETRON
  8. FENOFIBRATE. [Concomitant]
     Active Substance: FENOFIBRATE

REACTIONS (4)
  - Foot operation [None]
  - Systemic lupus erythematosus [None]
  - Toe amputation [None]
  - Pain [None]
